FAERS Safety Report 17071135 (Version 1)
Quarter: 2019Q4

REPORT INFORMATION
  Report Type: Spontaneous
  Country: US (occurrence: US)
  Receive Date: 20191125
  Receipt Date: 20191125
  Transmission Date: 20200122
  Serious: No
  Sender: FDA-Public Use
  Company Number: US-PFIZER INC-2019503517

PATIENT
  Age: 41 Year
  Sex: Female

DRUGS (6)
  1. PROVIGIL [Concomitant]
     Active Substance: MODAFINIL
     Dosage: UNK
  2. AMPYRA [Concomitant]
     Active Substance: DALFAMPRIDINE
     Dosage: UNK
  3. CELEBREX [Suspect]
     Active Substance: CELECOXIB
     Indication: ARTHRALGIA
     Dosage: UNK
  4. CELEBREX [Suspect]
     Active Substance: CELECOXIB
     Indication: JOINT SWELLING
  5. LEXAPRO [Concomitant]
     Active Substance: ESCITALOPRAM OXALATE
     Dosage: UNK
  6. TRI-SPRINTEC [Concomitant]
     Active Substance: ETHINYL ESTRADIOL\NORGESTIMATE
     Dosage: UNK

REACTIONS (1)
  - Oedema peripheral [Recovered/Resolved]
